FAERS Safety Report 7313413-5 (Version None)
Quarter: 2011Q1

REPORT INFORMATION
  Report Type: 
  Country: None (occurrence: None)
  Receive Date: 20110225
  Receipt Date: 20110218
  Transmission Date: 20110831
  Serious: No
  Sender: FDA-Public Use
  Company Number: US-PFIZER INC-2011036784

PATIENT
  Sex: Female

DRUGS (1)
  1. IBUPROFEN (ADVIL) [Suspect]
     Dosage: UNK
     Route: 048
     Dates: start: 20110216, end: 20110216

REACTIONS (2)
  - ACCIDENTAL EXPOSURE [None]
  - HYPOAESTHESIA ORAL [None]
